FAERS Safety Report 4508575-9 (Version None)
Quarter: 2004Q4

REPORT INFORMATION
  Report Type: 
  Country: None (occurrence: None)
  Receive Date: 20041123
  Receipt Date: 20040409
  Transmission Date: 20050328
  Serious: No
  Sender: FDA-Public Use
  Company Number: US-GLAXOSMITHKLINE-A0506484A

PATIENT
  Age: 58 Year
  Sex: Female

DRUGS (6)
  1. WELLBUTRIN SR [Suspect]
     Indication: DEPRESSION
     Dosage: 150MG TWICE PER DAY
     Route: 048
  2. PREVACID [Concomitant]
  3. ESTRACE [Concomitant]
  4. ZIAC [Concomitant]
  5. BEXTRA [Concomitant]
  6. GUIAFENESIN-DM [Concomitant]

REACTIONS (1)
  - HYPOTRICHOSIS [None]
